FAERS Safety Report 9857564 (Version 1)
Quarter: 2014Q1

REPORT INFORMATION
  Report Type: Spontaneous
  Country: IT (occurrence: IT)
  Receive Date: 20140131
  Receipt Date: 20140131
  Transmission Date: 20141002
  Serious: Yes (Hospitalization)
  Sender: FDA-Public Use
  Company Number: PHHY2014IT009189

PATIENT
  Sex: Male

DRUGS (3)
  1. TEGRETOL [Suspect]
     Indication: ATONIC SEIZURES
     Dosage: 1 DF, QD
     Route: 048
     Dates: start: 20131101, end: 20131117
  2. ENTACT [Concomitant]
     Indication: DEPRESSION
     Dosage: 10 GTT, UNK
     Route: 048
     Dates: start: 20130901, end: 20131121
  3. CARDIOASPIRIN [Concomitant]
     Indication: VASCULITIS NECROTISING
     Dosage: UNK UKN, UNK
     Route: 048

REACTIONS (1)
  - Dermatitis [Recovered/Resolved]
